FAERS Safety Report 14407660 (Version 1)
Quarter: 2018Q1

REPORT INFORMATION
  Report Type: Spontaneous
  Country: US (occurrence: US)
  Receive Date: 20180117
  Receipt Date: 20180117
  Transmission Date: 20180509
  Serious: No
  Sender: FDA-Public Use
  Company Number: None

PATIENT
  Age: 60 Year
  Sex: Male
  Weight: 135 kg

DRUGS (5)
  1. JANUMET [Concomitant]
     Active Substance: METFORMIN HYDROCHLORIDE\SITAGLIPTIN PHOSPHATE
  2. TOUJEO [Concomitant]
     Active Substance: INSULIN GLARGINE
  3. GENERIC TOPRAL [Concomitant]
  4. ACETOMINOPHEN-COD #3 TABLET [Suspect]
     Active Substance: ACETAMINOPHEN\CODEINE PHOSPHATE
     Indication: LABYRINTHITIS
     Dosage: ?          QUANTITY:21 TABLET(S);?
     Route: 048
  5. GENERIC AMLODOPINE [Concomitant]

REACTIONS (2)
  - Drug ineffective [None]
  - Extra dose administered [None]

NARRATIVE: CASE EVENT DATE: 20180116
